FAERS Safety Report 13275828 (Version 2)
Quarter: 2017Q1

REPORT INFORMATION
  Report Type: Spontaneous
  Country: DE (occurrence: DE)
  Receive Date: 20170228
  Receipt Date: 20170308
  Transmission Date: 20170428
  Serious: Yes (Other)
  Sender: FDA-Public Use
  Company Number: DE-CONCORDIA PHARMACEUTICALS INC.-GSH201702-001349

PATIENT
  Age: 39 Year
  Sex: Female

DRUGS (7)
  1. ACETYLSALICYLIC ACID [Suspect]
     Active Substance: ASPIRIN
     Indication: ANTIPHOSPHOLIPID SYNDROME
     Route: 065
  2. HYDROXYCHLOROQUINE [Suspect]
     Active Substance: HYDROXYCHLOROQUINE
     Route: 065
  3. PREDNISOLONE. [Suspect]
     Active Substance: PREDNISOLONE
     Indication: ANTIPHOSPHOLIPID SYNDROME
     Route: 048
  4. ILOPROST [Suspect]
     Active Substance: ILOPROST
     Indication: ANTIPHOSPHOLIPID SYNDROME
     Route: 065
  5. HYDROXYCHLOROQUINE [Suspect]
     Active Substance: HYDROXYCHLOROQUINE
     Indication: ANTIPHOSPHOLIPID SYNDROME
     Route: 065
  6. PHENPROCOUMON [Concomitant]
     Active Substance: PHENPROCOUMON
     Indication: ANTICOAGULANT THERAPY
  7. ILOPROST [Suspect]
     Active Substance: ILOPROST
     Route: 065

REACTIONS (5)
  - Antiphospholipid syndrome [Recovered/Resolved]
  - Condition aggravated [Recovered/Resolved]
  - Skin lesion [Recovered/Resolved]
  - Extremity necrosis [Recovered/Resolved]
  - Drug ineffective [Recovered/Resolved]
